FAERS Safety Report 23659617 (Version 1)
Quarter: 2024Q1

REPORT INFORMATION
  Report Type: Spontaneous
  Country: CN (occurrence: CN)
  Receive Date: 20240321
  Receipt Date: 20240321
  Transmission Date: 20240410
  Serious: Yes (Hospitalization, Other)
  Sender: FDA-Public Use
  Company Number: CN-009507513-2403CHN006489

PATIENT
  Age: 51 Year
  Sex: Male
  Weight: 41 kg

DRUGS (1)
  1. KEYTRUDA [Suspect]
     Active Substance: PEMBROLIZUMAB
     Indication: Oesophageal carcinoma
     Dosage: 200 MILLIGRAM, ONCE
     Route: 041
     Dates: start: 20240112, end: 20240112

REACTIONS (2)
  - Anaemia [Recovering/Resolving]
  - Stridor [Unknown]

NARRATIVE: CASE EVENT DATE: 20240212
